FAERS Safety Report 16661098 (Version 3)
Quarter: 2019Q3

REPORT INFORMATION
  Report Type: Spontaneous
  Country: US (occurrence: US)
  Receive Date: 20190802
  Receipt Date: 20190808
  Transmission Date: 20191004
  Serious: No
  Sender: FDA-Public Use
  Company Number: US-PFIZER INC-2018036796

PATIENT
  Age: 64 Year
  Sex: Male

DRUGS (3)
  1. LYRICA [Suspect]
     Active Substance: PREGABALIN
     Indication: ROUTINE HEALTH MAINTENANCE
     Dosage: 300 MG, 3X/DAY (TAKE 2 CAPSULES BY MOUTH IN THE AM, AND 1 CAPSULE AT BEDTIME)
     Route: 048
  2. LYRICA [Suspect]
     Active Substance: PREGABALIN
     Dosage: 150 MG (ONE CAPSULE) AT BEDTIME
     Route: 048
  3. LYRICA [Suspect]
     Active Substance: PREGABALIN
     Dosage: 2 CAPSULES BY MOUTH IN THE AM, AND 1 CAPSULE AT BEDTIME
     Route: 048

REACTIONS (6)
  - Withdrawal syndrome [Unknown]
  - Prescribed overdose [Unknown]
  - Hyperhidrosis [Unknown]
  - Off label use [Unknown]
  - Product use in unapproved indication [Unknown]
  - Diarrhoea [Unknown]
